FAERS Safety Report 21771359 (Version 1)
Quarter: 2022Q4

REPORT INFORMATION
  Report Type: Spontaneous
  Country: CN (occurrence: CN)
  Receive Date: 20221223
  Receipt Date: 20221223
  Transmission Date: 20230113
  Serious: Yes (Other)
  Sender: FDA-Public Use
  Company Number: CN-SUN PHARMACEUTICAL INDUSTRIES LTD-2022R1-370260

PATIENT
  Age: 4 Month
  Sex: Male

DRUGS (4)
  1. BUDESONIDE [Suspect]
     Active Substance: BUDESONIDE
     Indication: Pneumonia
     Dosage: UNK
  2. ALBUTEROL [Suspect]
     Active Substance: ALBUTEROL
     Indication: Pneumonia
     Dosage: UNK
  3. CLENBUTEROL [Suspect]
     Active Substance: CLENBUTEROL
     Indication: Pneumonia
     Dosage: 7.5 MILLILITER, BID
     Route: 048
  4. IPRATROPIUM BROMIDE [Suspect]
     Active Substance: IPRATROPIUM BROMIDE
     Indication: Pneumonia
     Dosage: UNK

REACTIONS (1)
  - Condition aggravated [Unknown]
